FAERS Safety Report 6470416-0 (Version None)
Quarter: 2009Q4

REPORT INFORMATION
  Report Type: 
  Country: None (occurrence: None)
  Receive Date: 20091203
  Receipt Date: 20091201
  Transmission Date: 20100525
  Serious: Yes (Other)
  Sender: FDA-Public Use
  Company Number: US-BRISTOL-MYERS SQUIBB COMPANY-14877534

PATIENT
  Age: 72 Year
  Sex: Female

DRUGS (21)
  1. CYTOXAN [Suspect]
     Indication: MULTIPLE MYELOMA
     Dosage: DAY 1,8,15 AND 21, UNK-2009
  2. REVLIMID [Suspect]
     Indication: MULTIPLE MYELOMA
     Dosage: STOPPED IN JUN07 RESTARTED ON 27APR09, INT ON 07AUG09 AND RESTARTED ON 02OCT09, DAILYX21 DAYS
     Route: 048
     Dates: start: 20060926
  3. DEXAMETHASONE TAB [Suspect]
     Indication: MULTIPLE MYELOMA
     Dosage: RESTARTED ON 02OCT09, DAY 1-4, 12-15
  4. SOTALOL HCL [Concomitant]
  5. BENICAR [Concomitant]
  6. LEVOTHYROXINE SODIUM [Concomitant]
  7. PRILOSEC [Concomitant]
  8. FOLIC ACID [Concomitant]
  9. CELEBREX [Concomitant]
  10. PREMARIN [Concomitant]
  11. KLOR-CON M [Concomitant]
  12. PLAQUENIL [Concomitant]
  13. CENTRUM [Concomitant]
  14. CALTRATE [Concomitant]
  15. VITAMIN B6 [Concomitant]
  16. CADUET [Concomitant]
  17. SPIRONOLACTONE [Concomitant]
  18. BENAZEPRIL HYDROCHLORIDE [Concomitant]
  19. LASIX [Concomitant]
  20. NEURONTIN [Concomitant]
  21. ANTIBIOTICS [Concomitant]

REACTIONS (7)
  - BRONCHITIS [None]
  - DYSPNOEA [None]
  - HAEMOGLOBIN DECREASED [None]
  - MALAISE [None]
  - OEDEMA PERIPHERAL [None]
  - PLATELET COUNT DECREASED [None]
  - WHITE BLOOD CELL COUNT DECREASED [None]
